FAERS Safety Report 5281133-7 (Version None)
Quarter: 2007Q1

REPORT INFORMATION
  Report Type: 
  Country: None (occurrence: None)
  Receive Date: 20070323
  Receipt Date: 20070313
  Transmission Date: 20070707
  Serious: Yes (Hospitalization)
  Sender: FDA-Public Use
  Company Number: 2007SP004782

PATIENT
  Age: 41 Year
  Sex: Male
  Weight: 74 kg

DRUGS (2)
  1. TEMODAL [Suspect]
     Indication: ASTROCYTOMA, LOW GRADE
     Dosage: 150 MG/M2; PO; PO
     Route: 048
     Dates: start: 20070220, end: 20070225
  2. TEMODAL [Suspect]
     Indication: ASTROCYTOMA, LOW GRADE
     Dosage: 150 MG/M2; PO; PO
     Route: 048
     Dates: start: 20070104

REACTIONS (1)
  - PULMONARY EMBOLISM [None]
